FAERS Safety Report 8426726-0 (Version None)
Quarter: 2012Q2

REPORT INFORMATION
  Report Type: 
  Country: None (occurrence: None)
  Receive Date: 20120611
  Receipt Date: 20120601
  Transmission Date: 20120825
  Serious: Yes (Other)
  Sender: FDA-Public Use
  Company Number: US-CELGENEUS-163-21880-12060160

PATIENT

DRUGS (3)
  1. DEXAMETHASONE [Suspect]
     Indication: MULTIPLE MYELOMA
     Dosage: 40 MILLIGRAM
     Route: 048
  2. REVLIMID [Suspect]
     Indication: MULTIPLE MYELOMA
     Dosage: 25 MILLIGRAM
     Route: 048
  3. ELOTUZUMAB [Suspect]
     Indication: MULTIPLE MYELOMA
     Dosage: 10 OR 20 MG/KG
     Route: 041

REACTIONS (4)
  - LYMPHOPENIA [None]
  - INFUSION RELATED REACTION [None]
  - THROMBOCYTOPENIA [None]
  - NEUTROPENIA [None]
